FAERS Safety Report 8418992-2 (Version None)
Quarter: 2012Q2

REPORT INFORMATION
  Report Type: 
  Country: None (occurrence: None)
  Receive Date: 20120607
  Receipt Date: 20120602
  Transmission Date: 20120825
  Serious: Yes (Other)
  Sender: FDA-Public Use
  Company Number: PHHY2012MX042036

PATIENT
  Sex: Male

DRUGS (5)
  1. ATORVASTATIN CALCIUM [Concomitant]
     Indication: BLOOD TRIGLYCERIDES INCREASED
  2. RASILEZ [Suspect]
     Indication: HYPERTENSION
     Dosage: 2 DF (300 MG), DAILY
     Dates: start: 20110915
  3. CRESTOR [Concomitant]
     Indication: BLOOD TRIGLYCERIDES INCREASED
     Dosage: 40 MG, BID
  4. METFORMIN HCL [Suspect]
     Dosage: 0.5 DF, BID
     Dates: start: 20111010
  5. ATORVASTATIN CALCIUM [Concomitant]
     Indication: BLOOD CHOLESTEROL INCREASED
     Dosage: 40 MG, QD

REACTIONS (4)
  - BLOOD PRESSURE INADEQUATELY CONTROLLED [None]
  - FATIGUE [None]
  - ASPHYXIA [None]
  - WRONG TECHNIQUE IN DRUG USAGE PROCESS [None]
